FAERS Safety Report 7797901-3 (Version None)
Quarter: 2011Q4

REPORT INFORMATION
  Report Type: 
  Country: None (occurrence: None)
  Receive Date: 20111005
  Receipt Date: 20110927
  Transmission Date: 20120403
  Serious: Yes (Hospitalization)
  Sender: FDA-Public Use
  Company Number: US-ABBOTT-11P-163-0858156-00

PATIENT
  Age: 31 Year
  Sex: Female

DRUGS (7)
  1. KLONOPIN [Concomitant]
     Indication: BIPOLAR DISORDER
     Dates: start: 20070101, end: 20091001
  2. KLONOPIN [Concomitant]
     Indication: ANXIETY
     Dosage: NOT REPORTED.
     Dates: start: 20090101
  3. LEXAPRO [Concomitant]
     Dosage: NOT REPORTED.
     Dates: start: 20090101
  4. CLARITIN [Concomitant]
     Indication: SEASONAL ALLERGY
  5. HUMIRA [Suspect]
     Indication: PSORIATIC ARTHROPATHY
     Route: 058
     Dates: start: 20090901, end: 20091001
  6. LEXAPRO [Concomitant]
     Indication: BIPOLAR DISORDER
     Dates: start: 20070101, end: 20091001
  7. IRON [Concomitant]
     Indication: ANAEMIA

REACTIONS (6)
  - PSORIASIS [None]
  - GESTATIONAL DIABETES [None]
  - AMNIOTIC FLUID VOLUME DECREASED [None]
  - CAESAREAN SECTION [None]
  - ARTHRITIS [None]
  - TYPE 2 DIABETES MELLITUS [None]
